FAERS Safety Report 17014466 (Version 2)
Quarter: 2020Q1

REPORT INFORMATION
  Report Type: Spontaneous
  Country: DE (occurrence: DE)
  Receive Date: 20191111
  Receipt Date: 20200227
  Transmission Date: 20200409
  Serious: Yes (Other)
  Sender: FDA-Public Use
  Company Number: DE-TEVA-2019-DE-1133308

PATIENT
  Age: 43 Year
  Sex: Female

DRUGS (1)
  1. COPAXONE [Suspect]
     Active Substance: GLATIRAMER ACETATE
     Indication: MULTIPLE SCLEROSIS
     Dates: start: 2018

REACTIONS (5)
  - Mental disorder [Not Recovered/Not Resolved]
  - Induration [Recovered/Resolved]
  - Multiple sclerosis [Unknown]
  - Gait disturbance [Unknown]
  - Dizziness [Not Recovered/Not Resolved]

NARRATIVE: CASE EVENT DATE: 2019
